FAERS Safety Report 9121025 (Version 1)
Quarter: 2013Q1

REPORT INFORMATION
  Report Type: Spontaneous
  Country: US (occurrence: US)
  Receive Date: 20130226
  Receipt Date: 20130226
  Transmission Date: 20140127
  Serious: Yes (Other)
  Sender: FDA-Public Use
  Company Number: US-BAYER-2013-023728

PATIENT
  Age: 32 Year
  Sex: Female
  Weight: 59 kg

DRUGS (1)
  1. BAYER GENUINE ASPIRIN ORIGINAL STRENGTH [Suspect]
     Indication: BILIARY COLIC
     Dosage: UNK
     Route: 048

REACTIONS (6)
  - Intentional overdose [None]
  - Tinnitus [None]
  - Hearing impaired [None]
  - Nausea [None]
  - Hyperhidrosis [None]
  - Off label use [None]
